FAERS Safety Report 5636586-9 (Version None)
Quarter: 2008Q1

REPORT INFORMATION
  Report Type: 
  Country: None (occurrence: None)
  Receive Date: 20080219
  Receipt Date: 20080219
  Transmission Date: 20080703
  Serious: Yes (Hospitalization)
  Sender: FDA-Public Use
  Company Number: None

PATIENT
  Age: 65 Year
  Sex: Male
  Weight: 86.1 kg

DRUGS (1)
  1. TERAZOSIN HCL [Suspect]
     Indication: BENIGN PROSTATIC HYPERPLASIA
     Dosage: 2MG EVERY DAY PO
     Route: 048
     Dates: start: 20061221, end: 20070111

REACTIONS (3)
  - ERYTHEMA [None]
  - RASH PRURITIC [None]
  - URTICARIA [None]
